FAERS Safety Report 13860811 (Version 4)
Quarter: 2017Q3

REPORT INFORMATION
  Report Type: Spontaneous
  Country: US (occurrence: US)
  Receive Date: 20170811
  Receipt Date: 20170914
  Transmission Date: 20171127
  Serious: Yes (Other)
  Sender: FDA-Public Use
  Company Number: US-009507513-1708USA003736

PATIENT

DRUGS (5)
  1. VORICONAZOLE. [Interacting]
     Active Substance: VORICONAZOLE
     Dosage: UNK
     Route: 048
  2. VORICONAZOLE. [Interacting]
     Active Substance: VORICONAZOLE
     Route: 055
  3. FLUTICASONE PROPIONATE. [Interacting]
     Active Substance: FLUTICASONE PROPIONATE
     Dosage: UNK
     Route: 055
  4. NASONEX [Suspect]
     Active Substance: MOMETASONE FUROATE
     Route: 045
  5. VORICONAZOLE. [Interacting]
     Active Substance: VORICONAZOLE
     Route: 045

REACTIONS (3)
  - Drug interaction [Unknown]
  - Cushing^s syndrome [Unknown]
  - Adrenal insufficiency [Unknown]
